FAERS Safety Report 22530802 (Version 4)
Quarter: 2023Q4

REPORT INFORMATION
  Report Type: Spontaneous
  Country: IN (occurrence: IN)
  Receive Date: 20230607
  Receipt Date: 20231108
  Transmission Date: 20240110
  Serious: Yes (Life-Threatening, Other)
  Sender: FDA-Public Use
  Company Number: IN-PFIZER INC-202300210172

PATIENT
  Age: 60 Year
  Sex: Male

DRUGS (5)
  1. FLUCONAZOLE [Interacting]
     Active Substance: FLUCONAZOLE
     Indication: Meningitis cryptococcal
     Dosage: 1200 MG, DAILY
  2. TACROLIMUS [Interacting]
     Active Substance: TACROLIMUS
     Indication: Meningitis cryptococcal
     Dosage: 0.5 MG, 2X/DAY
  3. AMPHOTERICIN B [Concomitant]
     Active Substance: AMPHOTERICIN B
     Indication: Meningitis cryptococcal
     Dosage: 10 MG/KG, SINGLE DOSE
  4. FLUCYTOSINE [Concomitant]
     Active Substance: FLUCYTOSINE
     Indication: Meningitis cryptococcal
     Dosage: 6 G, DAILY
  5. DEXAMETHASONE [Concomitant]
     Active Substance: DEXAMETHASONE
     Indication: Meningitis cryptococcal
     Dosage: 0.3 MG/KG FOR 1 WEEK

REACTIONS (8)
  - Drug interaction [Unknown]
  - Drug level increased [Unknown]
  - Toxicity to various agents [Unknown]
  - Electrocardiogram QT prolonged [Unknown]
  - Renal impairment [Unknown]
  - Behaviour disorder [Unknown]
  - Diarrhoea [Unknown]
  - Off label use [Unknown]
